FAERS Safety Report 8369637-1 (Version None)
Quarter: 2012Q2

REPORT INFORMATION
  Report Type: 
  Country: None (occurrence: None)
  Receive Date: 20120518
  Receipt Date: 20120515
  Transmission Date: 20120825
  Serious: No
  Sender: FDA-Public Use
  Company Number: PHEH2012US010345

PATIENT
  Sex: Female

DRUGS (4)
  1. TAMOXIFEN CITRATE [Concomitant]
     Dosage: 20 MG, UNK
  2. METOPROLOL TARTRATE [Concomitant]
     Dosage: 25 MG, UNK
  3. LOVASTATIN [Concomitant]
     Dosage: 20 MG, UNK
  4. TASIGNA [Suspect]
     Dosage: 2 DF, BID
     Route: 048

REACTIONS (2)
  - CONSTIPATION [None]
  - DIARRHOEA [None]
